FAERS Safety Report 7658714-6 (Version None)
Quarter: 2011Q3

REPORT INFORMATION
  Report Type: 
  Country: None (occurrence: None)
  Receive Date: 20110805
  Receipt Date: 20110729
  Transmission Date: 20111222
  Serious: Yes (Hospitalization, Other)
  Sender: FDA-Public Use
  Company Number: AR-AMGEN-ARGSP2011039205

PATIENT
  Age: 61 Year
  Sex: Female

DRUGS (1)
  1. ENBREL [Suspect]
     Indication: RHEUMATOID ARTHRITIS
     Dosage: 25 MG, ONE DOSE EVERY FIVE DAYS
     Dates: start: 20050422

REACTIONS (5)
  - PAIN [None]
  - HYPOKINESIA [None]
  - CRYING [None]
  - CEREBROVASCULAR ACCIDENT [None]
  - MALAISE [None]
